FAERS Safety Report 6348497-4 (Version None)
Quarter: 2009Q3

REPORT INFORMATION
  Report Type: 
  Country: None (occurrence: None)
  Receive Date: 20090911
  Receipt Date: 20080325
  Transmission Date: 20100115
  Serious: Yes (Other)
  Sender: FDA-Public Use
  Company Number: US-ASTRAZENECA-2006UW08281

PATIENT
  Age: 601 Month
  Sex: Female
  Weight: 83 kg

DRUGS (8)
  1. SEROQUEL [Suspect]
     Indication: BIPOLAR DISORDER
     Route: 048
     Dates: start: 20050824, end: 20060801
  2. SEROQUEL [Suspect]
     Indication: DEPRESSION
     Route: 048
     Dates: start: 20050824, end: 20060801
  3. SEROQUEL [Suspect]
     Dosage: 100MG-300MG DAILY
     Route: 048
     Dates: start: 20050824
  4. SEROQUEL [Suspect]
     Dosage: 100MG-300MG DAILY
     Route: 048
     Dates: start: 20050824
  5. CYMBALTA [Concomitant]
     Dates: start: 20060101
  6. ATIVAN [Concomitant]
     Route: 048
     Dates: start: 20060101
  7. PAXIL [Concomitant]
     Route: 048
     Dates: start: 20050101
  8. ZOLOFT [Concomitant]
     Dates: start: 20070101

REACTIONS (3)
  - DIABETES MELLITUS [None]
  - DIABETIC NEUROPATHY [None]
  - OVERDOSE [None]
